FAERS Safety Report 5368548-3 (Version None)
Quarter: 2007Q2

REPORT INFORMATION
  Report Type: 
  Country: None (occurrence: None)
  Receive Date: 20070620
  Receipt Date: 20060509
  Transmission Date: 20071010
  Serious: No
  Sender: FDA-Public Use
  Company Number: 002#4#2006-00076

PATIENT
  Age: 46 Year
  Sex: Female
  Weight: 63.5036 kg

DRUGS (2)
  1. UNIVASC [Suspect]
     Indication: HYPERTENSION
     Dosage: 7.5MG, 1 IN 1 D, ORAL
     Route: 048
     Dates: start: 20060201, end: 20060201
  2. CYCLOBENZAPRINE HCL [Concomitant]

REACTIONS (2)
  - BLOOD PRESSURE INADEQUATELY CONTROLLED [None]
  - DRUG INEFFECTIVE [None]
